FAERS Safety Report 12750683 (Version 1)
Quarter: 2016Q3

REPORT INFORMATION
  Report Type: Spontaneous
  Country: US (occurrence: US)
  Receive Date: 20160915
  Receipt Date: 20160915
  Transmission Date: 20161109
  Serious: Yes (Other)
  Sender: FDA-Public Use
  Company Number: US-ASTELLAS-2016US001122

PATIENT
  Age: 79 Year
  Sex: Male

DRUGS (4)
  1. ZYTIGA [Concomitant]
     Active Substance: ABIRATERONE ACETATE
     Indication: PRODUCT USED FOR UNKNOWN INDICATION
     Dosage: UNK UNK, UNKNOWN FREQ.
     Route: 065
     Dates: end: 20150729
  2. XTANDI [Suspect]
     Active Substance: ENZALUTAMIDE
     Indication: PROSTATE CANCER METASTATIC
     Dosage: UNK, UNKNOWN FREQ.
     Route: 065
     Dates: start: 20150730
  3. LUPRON [Suspect]
     Active Substance: LEUPROLIDE ACETATE
     Indication: PRODUCT USED FOR UNKNOWN INDICATION
     Dosage: UNK, UNKNOWN FREQ.
     Route: 065
  4. XTANDI [Suspect]
     Active Substance: ENZALUTAMIDE
     Route: 065
     Dates: start: 20151104

REACTIONS (8)
  - Diarrhoea [Not Recovered/Not Resolved]
  - Constipation [Recovering/Resolving]
  - Asthenia [Not Recovered/Not Resolved]
  - Weight decreased [Not Recovered/Not Resolved]
  - Rash [Unknown]
  - Decreased appetite [Unknown]
  - Prostatic specific antigen increased [Unknown]
  - Hot flush [Unknown]

NARRATIVE: CASE EVENT DATE: 201512
